FAERS Safety Report 6374809-1 (Version None)
Quarter: 2009Q3

REPORT INFORMATION
  Report Type: 
  Country: None (occurrence: None)
  Receive Date: 20090917
  Receipt Date: 20090917
  Transmission Date: 20100115
  Serious: No
  Sender: FDA-Public Use
  Company Number: None

PATIENT
  Sex: Female
  Weight: 120.2032 kg

DRUGS (1)
  1. CALCIUM 600 + D 600 MG ORIGIN, DISTRIBUTED BY TARGET CORP [Suspect]
     Indication: MINERAL SUPPLEMENTATION
     Dosage: 600 NG TWICE/DAY PO APPX APRIL 2009 TO
     Route: 048

REACTIONS (1)
  - PRODUCT CONTAMINATION [None]
